FAERS Safety Report 17051319 (Version 2)
Quarter: 2019Q4

REPORT INFORMATION
  Report Type: Other
  Country: DE (occurrence: DE)
  Receive Date: 20191120
  Receipt Date: 20191128
  Transmission Date: 20200122
  Serious: Yes (Disabling, Other)
  Sender: FDA-Public Use
  Company Number: DE-MACLEODS PHARMACEUTICALS US LTD-MAC2019023816

PATIENT

DRUGS (6)
  1. PANTOPRAZOLE TAD [Concomitant]
     Indication: GASTRIC PH DECREASED
     Dosage: 40 MILLIGRAM
     Route: 048
     Dates: start: 20150820
  2. SIMVASTATIN ABZ [Concomitant]
     Indication: LIPID METABOLISM DISORDER
     Dosage: 40 MILLIGRAM
     Route: 048
     Dates: start: 20141212
  3. MONO-EMBOLEX [Concomitant]
     Active Substance: CERTOPARIN SODIUM
     Indication: THROMBOSIS PROPHYLAXIS
     Dosage: 3000 INTERNATIONAL UNIT,MONO-EMBOLEX 3000 I.E. PROPHYLAXIS SAFETY SYRINGE,SOLUTION FOR INJECTION IN
     Route: 003
     Dates: start: 20150820
  4. VALSARTAN. [Suspect]
     Active Substance: VALSARTAN
     Indication: RENIN-ANGIOTENSIN SYSTEM INHIBITION
     Dosage: FILM COATED TABLETS OF VALSARTAN ZENTIVA 80 MG
     Route: 048
     Dates: start: 20141212
  5. ATORVASTATIN [Concomitant]
     Active Substance: ATORVASTATIN
     Indication: PRODUCT USED FOR UNKNOWN INDICATION
     Dosage: 20 MILLIGRAM
     Route: 065
     Dates: start: 20150623
  6. DICLAC 75 ID [Concomitant]
     Indication: ANALGESIC INTERVENTION SUPPORTIVE THERAPY
     Dosage: 75 MILLIGRAM
     Route: 065
     Dates: start: 20150820

REACTIONS (2)
  - Flank pain [Unknown]
  - Renal cancer [Unknown]

NARRATIVE: CASE EVENT DATE: 201607
